FAERS Safety Report 21201883 (Version 3)
Quarter: 2022Q3

REPORT INFORMATION
  Report Type: Spontaneous
  Country: US (occurrence: None)
  Receive Date: 20220811
  Receipt Date: 20220901
  Transmission Date: 20221027
  Serious: Yes (Death)
  Sender: FDA-Public Use
  Company Number: US-ROCHE-3159452

PATIENT
  Age: 57 Year
  Sex: Female

DRUGS (1)
  1. ESBRIET [Suspect]
     Active Substance: PIRFENIDONE
     Indication: Pulmonary fibrosis
     Route: 048
     Dates: start: 20181029

REACTIONS (2)
  - Respiratory failure [Fatal]
  - Cardiac failure [Fatal]

NARRATIVE: CASE EVENT DATE: 20220810
